FAERS Safety Report 6209470-X (Version None)
Quarter: 2009Q2

REPORT INFORMATION
  Report Type: 
  Country: None (occurrence: None)
  Receive Date: 20090601
  Receipt Date: 20090202
  Transmission Date: 20091009
  Serious: No
  Sender: FDA-Public Use
  Company Number: A0766332A

PATIENT
  Age: 58 Year
  Sex: Female

DRUGS (2)
  1. AMOXICILLIN AND CLAVULANATE POTASSIUM [Suspect]
     Dosage: 500MG TWICE PER DAY
     Route: 048
     Dates: start: 20090127
  2. SYNTHROID [Concomitant]

REACTIONS (2)
  - PRURITUS [None]
  - URTICARIA [None]
